FAERS Safety Report 7392574-6 (Version None)
Quarter: 2011Q1

REPORT INFORMATION
  Report Type: 
  Country: None (occurrence: None)
  Receive Date: 20110330
  Receipt Date: 20110330
  Transmission Date: 20110831
  Serious: Yes (Hospitalization)
  Sender: FDA-Public Use
  Company Number: None

PATIENT
  Sex: Female
  Weight: 67 kg

DRUGS (6)
  1. PREDNISONE [Suspect]
     Dosage: 1000MG
  2. VINCRISTINE SULFATE [Suspect]
     Dosage: 2.72MG
  3. ETOPOSIDE [Suspect]
     Dosage: 489.6MG
  4. DOXORUBICIN HYDROCHLORIDE [Suspect]
     Dosage: 97.2MG
  5. RITUXIMAB (MOAB C2B8 ANTI CD20, CHIMERIC) [Suspect]
     Dosage: 637MG
  6. CYCLOPHOSPHAMIDE [Suspect]
     Dosage: 1836MG

REACTIONS (14)
  - ANAEMIA [None]
  - FEBRILE NEUTROPENIA [None]
  - WHITE BLOOD CELL COUNT DECREASED [None]
  - GASTRIC ULCER [None]
  - PRODUCTIVE COUGH [None]
  - ASTHENIA [None]
  - PLATELET COUNT DECREASED [None]
  - SEPSIS [None]
  - ENTEROCOLITIS INFECTIOUS [None]
  - DEHYDRATION [None]
  - ABDOMINAL PAIN [None]
  - NAUSEA [None]
  - DIARRHOEA [None]
  - CLOSTRIDIUM DIFFICILE COLITIS [None]
